FAERS Safety Report 5242288-3 (Version None)
Quarter: 2007Q1

REPORT INFORMATION
  Report Type: 
  Country: None (occurrence: None)
  Receive Date: 20070216
  Receipt Date: 20070216
  Transmission Date: 20070707
  Serious: Yes (Life-Threatening, Hospitalization, Other)
  Sender: FDA-Public Use
  Company Number: None

PATIENT
  Age: 74 Year
  Sex: Male

DRUGS (2)
  1. PHENYTOIN [Suspect]
     Indication: CONVULSION
     Dosage: 300 MG EVERY DAY PO
     Route: 048
     Dates: start: 20060816
  2. PHENOBARBITAL TAB [Suspect]
     Dosage: 30 MG TID PO
     Route: 048
     Dates: start: 20061204

REACTIONS (1)
  - CONFUSIONAL STATE [None]
